FAERS Safety Report 5795549-3 (Version None)
Quarter: 2008Q2

REPORT INFORMATION
  Report Type: 
  Country: None (occurrence: None)
  Receive Date: 20080630
  Receipt Date: 20080618
  Transmission Date: 20081010
  Serious: Yes (Other)
  Sender: FDA-Public Use
  Company Number: PHNU2007DE00655

PATIENT
  Sex: Female

DRUGS (2)
  1. ZOMETA [Suspect]
     Indication: PROPHYLAXIS
     Dosage: EVERY 28 DAYS
     Dates: start: 20050801, end: 20060101
  2. HERCEPTIN ^HOFFMANN-LA ROCHE^ [Concomitant]
     Dosage: 1 DF, TIW

REACTIONS (12)
  - BONE DISORDER [None]
  - CANDIDIASIS [None]
  - CHEST X-RAY [None]
  - DENTAL CARIES [None]
  - METASTASES TO LUNG [None]
  - OSTEONECROSIS [None]
  - PERIODONTITIS [None]
  - PRIMARY SEQUESTRUM [None]
  - SCINTIGRAPHY [None]
  - SINGLE PHOTON EMISSION COMPUTERISED TOMOGRAM ABNORMAL [None]
  - TOOTH DISORDER [None]
  - X-RAY DENTAL [None]
